FAERS Safety Report 6099031-8 (Version None)
Quarter: 2009Q1

REPORT INFORMATION
  Report Type: 
  Country: None (occurrence: None)
  Receive Date: 20090302
  Receipt Date: 20090218
  Transmission Date: 20090719
  Serious: Yes (Hospitalization)
  Sender: FDA-Public Use
  Company Number: AT-PFIZER INC-2009174781

PATIENT

DRUGS (3)
  1. GLADEM [Suspect]
     Dosage: 50 MG, 1X/DAY
     Dates: start: 20020101
  2. SOLIAN [Suspect]
     Dosage: 800 MG (400 MG)
     Dates: start: 20020101
  3. AKINETON [Concomitant]
     Dosage: 4 MG (2 MG)
     Dates: start: 20090114

REACTIONS (1)
  - MENTAL DISORDER [None]
